FAERS Safety Report 13757220 (Version 1)
Quarter: 2017Q3

REPORT INFORMATION
  Report Type: Spontaneous
  Country: US (occurrence: US)
  Receive Date: 20170714
  Receipt Date: 20170714
  Transmission Date: 20171127
  Serious: Yes (Disabling)
  Sender: FDA-Public Use
  Company Number: None

PATIENT
  Age: 36 Year
  Sex: Female
  Weight: 59.85 kg

DRUGS (6)
  1. ZYRTEC [Concomitant]
     Active Substance: CETIRIZINE HYDROCHLORIDE
  2. VALTREX [Concomitant]
     Active Substance: VALACYCLOVIR HYDROCHLORIDE
  3. FLONASE [Concomitant]
     Active Substance: FLUTICASONE PROPIONATE
  4. MIRENA [Suspect]
     Active Substance: LEVONORGESTREL
     Indication: CONTRACEPTION
     Dosage: ?          OTHER STRENGTH:MG;QUANTITY:1 DEVICE;?
     Dates: start: 20160322
  5. IBUPROFEN. [Concomitant]
     Active Substance: IBUPROFEN
  6. ESSENTIAL OILS. [Concomitant]
     Active Substance: ESSENTIAL OILS

REACTIONS (9)
  - Insomnia [None]
  - Vulvovaginal dryness [None]
  - Alopecia [None]
  - Menopausal symptoms [None]
  - Hot flush [None]
  - Acne [None]
  - Night sweats [None]
  - Depression [None]
  - Feeling abnormal [None]
